FAERS Safety Report 10409768 (Version 2)
Quarter: 2014Q3

REPORT INFORMATION
  Report Type: Report from Study
  Country: VE (occurrence: VE)
  Receive Date: 20140826
  Receipt Date: 20140826
  Transmission Date: 20150326
  Serious: Yes (Death)
  Sender: FDA-Public Use
  Company Number: VE-ABBVIE-13P-178-1139411-00

PATIENT
  Sex: Female

DRUGS (1)
  1. ZEMPLAR [Suspect]
     Active Substance: PARICALCITOL
     Indication: RENAL FAILURE
     Route: 042
     Dates: end: 20130814

REACTIONS (2)
  - Respiratory failure [Fatal]
  - Cardiac disorder [Fatal]
